FAERS Safety Report 4796220-7 (Version None)
Quarter: 2005Q4

REPORT INFORMATION
  Report Type: 
  Country: None (occurrence: None)
  Receive Date: 20051007
  Receipt Date: 20050924
  Transmission Date: 20060501
  Serious: Yes (Hospitalization, Other)
  Sender: FDA-Public Use
  Company Number: 2005126321

PATIENT
  Sex: Female

DRUGS (4)
  1. CELEBREX [Suspect]
     Indication: RHEUMATOID ARTHRITIS
     Dosage: 200 MG (200 MG, 1 IN 1 D), ORAL
     Route: 048
  2. TYLENOL [Concomitant]
  3. ALEVE [Concomitant]
  4. HYDROCHLOROTHIAZIDE/TRIAMTERENE (HYDROCHLOROTHIAZIDE, TRIAMTERENE) [Concomitant]

REACTIONS (9)
  - ASTHENIA [None]
  - CARDIAC FAILURE CONGESTIVE [None]
  - DYSPHONIA [None]
  - DYSSTASIA [None]
  - EMPHYSEMA [None]
  - LUNG NEOPLASM MALIGNANT [None]
  - MEMORY IMPAIRMENT [None]
  - METASTASIS [None]
  - PERICARDIAL EFFUSION [None]
